FAERS Safety Report 4749333-X (Version None)
Quarter: 2005Q3

REPORT INFORMATION
  Report Type: 
  Country: None (occurrence: None)
  Receive Date: 20050812
  Receipt Date: 20050613
  Transmission Date: 20060218
  Serious: Yes (Other)
  Sender: FDA-Public Use
  Company Number: 407660

PATIENT
  Age: 64 Year
  Sex: Male

DRUGS (3)
  1. PEGASYS [Suspect]
     Indication: HEPATITIS C
  2. RIBAVIRIN [Suspect]
     Indication: HEPATITIS C
     Dosage: 1000 MG
  3. PROCRIT [Suspect]
     Indication: ANAEMIA
     Dosage: 40000 IU  1 PER WEEK
     Dates: start: 20050115

REACTIONS (3)
  - ANAEMIA [None]
  - EOSINOPHIL COUNT DECREASED [None]
  - RETICULOCYTE COUNT DECREASED [None]
